FAERS Safety Report 6344536-5 (Version None)
Quarter: 2009Q3

REPORT INFORMATION
  Report Type: 
  Country: None (occurrence: None)
  Receive Date: 20090903
  Receipt Date: 20090817
  Transmission Date: 20100115
  Serious: Yes (Hospitalization)
  Sender: FDA-Public Use
  Company Number: 2008AL007981

PATIENT
  Age: 49 Year
  Sex: Male

DRUGS (29)
  1. DIGOXIN [Suspect]
     Indication: CARDIAC FAILURE CONGESTIVE
     Dosage: 0.25MG, DAILY, PO
     Route: 048
  2. DIGOXIN [Suspect]
     Indication: CARDIAC FAILURE CONGESTIVE
     Dosage: 0.25MG, 1.5TAB Q3RD DAY
  3. COUMADIN [Concomitant]
  4. ENALAPRIL MALEATE [Concomitant]
  5. COREG [Concomitant]
  6. ALDACTONE [Concomitant]
  7. PROTONIX [Concomitant]
  8. LIPITOR [Concomitant]
  9. ASPIRIN [Concomitant]
  10. INSULIN [Concomitant]
  11. NOVOLOG [Concomitant]
  12. DOBUTAMINE HCL [Concomitant]
  13. HEPARIN [Concomitant]
  14. THIAMINE HCL [Concomitant]
  15. FOLATE [Concomitant]
  16. CAPOTEN [Concomitant]
  17. ALDACTONE [Concomitant]
  18. LANTUS [Concomitant]
  19. NOVOLIN INSULIN [Concomitant]
  20. PROTONIX [Concomitant]
  21. ENALAPRIL MALEATE [Concomitant]
  22. LOPRESSOR [Concomitant]
  23. LASIX [Concomitant]
  24. COUMADIN [Concomitant]
  25. DIOVAN [Concomitant]
  26. DARVOCET-N 100 [Concomitant]
  27. TYLENOL (CAPLET) [Concomitant]
  28. RESTORIL [Concomitant]
  29. NITROGLYCERIN [Concomitant]

REACTIONS (42)
  - ABDOMINAL PAIN [None]
  - ABDOMINAL PAIN UPPER [None]
  - ABDOMINAL TENDERNESS [None]
  - ACTIVATED PARTIAL THROMBOPLASTIN TIME PROLONGED [None]
  - APPENDIX DISORDER [None]
  - BLOOD GLUCOSE INCREASED [None]
  - BLOOD LACTATE DEHYDROGENASE INCREASED [None]
  - BRONCHITIS [None]
  - CARDIAC FAILURE [None]
  - CARDIAC FAILURE CONGESTIVE [None]
  - CARDIOGENIC SHOCK [None]
  - CATARACT [None]
  - CHEST DISCOMFORT [None]
  - CHEST PAIN [None]
  - CORONARY ARTERY DISEASE [None]
  - CORONARY ARTERY OCCLUSION [None]
  - DECREASED APPETITE [None]
  - DIZZINESS [None]
  - DYSPNOEA [None]
  - EJECTION FRACTION DECREASED [None]
  - ELECTROCARDIOGRAM Q WAVE ABNORMAL [None]
  - EPISTAXIS [None]
  - GALLBLADDER DISORDER [None]
  - GLYCOSYLATED HAEMOGLOBIN INCREASED [None]
  - HALO VISION [None]
  - HYPOTENSION [None]
  - LEFT VENTRICULAR DYSFUNCTION [None]
  - LEFT VENTRICULAR END-DIASTOLIC PRESSURE INCREASED [None]
  - MYOCARDIAL INFARCTION [None]
  - NAUSEA [None]
  - NEPHROLITHIASIS [None]
  - OCCUPATIONAL EXPOSURE TO DUST [None]
  - PALPITATIONS [None]
  - PLEURAL EFFUSION [None]
  - PROTHROMBIN TIME PROLONGED [None]
  - RED BLOOD CELL SEDIMENTATION RATE INCREASED [None]
  - RETINOPATHY HYPERTENSIVE [None]
  - ROTATOR CUFF SYNDROME [None]
  - TACHYCARDIA [None]
  - THERAPEUTIC AGENT TOXICITY [None]
  - VITREOUS HAEMORRHAGE [None]
  - VOMITING [None]
